FAERS Safety Report 7319399-1 (Version None)
Quarter: 2011Q1

REPORT INFORMATION
  Report Type: 
  Country: None (occurrence: None)
  Receive Date: 20110228
  Receipt Date: 20100305
  Transmission Date: 20110831
  Serious: No
  Sender: FDA-Public Use
  Company Number: A0848684A

PATIENT
  Age: 22 Year
  Sex: Male

DRUGS (2)
  1. NO CONCURRENT MEDICATION [Concomitant]
  2. LAMOTRIGINE [Suspect]
     Indication: BIPOLAR DISORDER
     Dosage: 100MG PER DAY
     Route: 048
     Dates: start: 20090501, end: 20100201

REACTIONS (2)
  - RASH [None]
  - FURUNCLE [None]
